FAERS Safety Report 23655701 (Version 1)
Quarter: 2024Q1

REPORT INFORMATION
  Report Type: Spontaneous
  Country: DK (occurrence: DK)
  Receive Date: 20240321
  Receipt Date: 20240321
  Transmission Date: 20240410
  Serious: Yes (Hospitalization)
  Sender: FDA-Public Use
  Company Number: DK-IHL-000506

PATIENT
  Sex: Female

DRUGS (8)
  1. PALIPERIDONE [Suspect]
     Active Substance: PALIPERIDONE
     Indication: Product used for unknown indication
     Route: 030
  2. PANTOPRAZOLE [Concomitant]
     Active Substance: PANTOPRAZOLE
     Indication: Product used for unknown indication
     Route: 065
  3. ATORVASTATIN [Concomitant]
     Active Substance: ATORVASTATIN
     Indication: Product used for unknown indication
     Route: 065
  4. VITAMIN D3 [Concomitant]
     Active Substance: CHOLECALCIFEROL
     Indication: Product used for unknown indication
     Route: 065
  5. FLUTICASONE [Concomitant]
     Active Substance: FLUTICASONE
     Indication: Product used for unknown indication
     Route: 065
  6. BUDESONIDE [Concomitant]
     Active Substance: BUDESONIDE
     Indication: Product used for unknown indication
     Route: 065
  7. VALPROIC ACID [Suspect]
     Active Substance: VALPROIC ACID
     Indication: Product used for unknown indication
     Route: 065
  8. VARENICLINE [Concomitant]
     Active Substance: VARENICLINE
     Indication: Product used for unknown indication
     Route: 065

REACTIONS (18)
  - Toxicity to various agents [Recovered/Resolved]
  - Antipsychotic drug level above therapeutic [Recovered/Resolved]
  - Acute kidney injury [Unknown]
  - Drug interaction [Unknown]
  - Bipolar disorder [Unknown]
  - Dystonia [Recovering/Resolving]
  - Extrapyramidal disorder [Recovered/Resolved]
  - Confusional state [Recovered/Resolved]
  - Gait disturbance [Recovered/Resolved]
  - Dysstasia [Recovered/Resolved]
  - Apathy [Recovered/Resolved]
  - Nuchal rigidity [Recovered/Resolved]
  - Muscle rigidity [Recovered/Resolved]
  - Gait inability [Recovered/Resolved]
  - Sitting disability [Recovered/Resolved]
  - Somnolence [Recovered/Resolved]
  - Condition aggravated [Recovered/Resolved]
  - Loss of personal independence in daily activities [Recovered/Resolved]
